FAERS Safety Report 5212963-5 (Version None)
Quarter: 2007Q1

REPORT INFORMATION
  Report Type: 
  Country: None (occurrence: None)
  Receive Date: 20070117
  Receipt Date: 20070117
  Transmission Date: 20070707
  Serious: Yes (Other)
  Sender: FDA-Public Use
  Company Number: None

PATIENT
  Sex: Male
  Weight: 81.6475 kg

DRUGS (4)
  1. BIVALIRUDIN .75 MKG BOLUS, FOLLOWED BY ANGIOMAX [Suspect]
     Indication: ANTICOAGULANT THERAPY
     Dosage: 12 CC BOLUS 28 CC INFUSION
     Dates: start: 20060112, end: 20060112
  2. BIVALIRUDIN .75 MKG BOLUS, FOLLOWED BY ANGIOMAX [Suspect]
     Indication: ARTERIAL THERAPEUTIC PROCEDURE
     Dosage: 12 CC BOLUS 28 CC INFUSION
     Dates: start: 20060112, end: 20060112
  3. PLAVIX [Suspect]
     Indication: ANTIPLATELET THERAPY
     Dosage: 600/75 LOADING MAINTENANCE PO
     Route: 048
     Dates: start: 20060112, end: 20060113
  4. PLAVIX [Suspect]
     Indication: ARTERIAL THERAPEUTIC PROCEDURE
     Dosage: 600/75 LOADING MAINTENANCE PO
     Route: 048
     Dates: start: 20060112, end: 20060113

REACTIONS (1)
  - MYOCARDIAL INFARCTION [None]
